FAERS Safety Report 6715010-9 (Version None)
Quarter: 2010Q2

REPORT INFORMATION
  Report Type: 
  Country: None (occurrence: None)
  Receive Date: 20100506
  Receipt Date: 20100506
  Transmission Date: 20101027
  Serious: Yes (Other)
  Sender: FDA-Public Use
  Company Number: None

PATIENT
  Age: 8 Year
  Sex: Male
  Weight: 40.8237 kg

DRUGS (2)
  1. CHILDREN'S TYLENOL PLUS COUGH + 160 MG MCNEIL [Suspect]
     Indication: PYREXIA
     Dosage: 2 TSP ONCE PO
     Route: 048
     Dates: start: 20100505, end: 20100505
  2. CHILDREN'S TYLENOL PLUS COUGH + 160 MG MCNEIL [Suspect]
     Indication: STREPTOCOCCAL INFECTION
     Dosage: 2 TSP ONCE PO
     Route: 048
     Dates: start: 20100505, end: 20100505

REACTIONS (2)
  - PRODUCT QUALITY ISSUE [None]
  - VOMITING [None]
